FAERS Safety Report 4765753-1 (Version None)
Quarter: 2005Q3

REPORT INFORMATION
  Report Type: 
  Country: None (occurrence: None)
  Receive Date: 20050906
  Receipt Date: 20050829
  Transmission Date: 20060218
  Serious: Yes (Hospitalization)
  Sender: FDA-Public Use
  Company Number: GRP05000139

PATIENT
  Sex: Female
  Weight: 45.7 kg

DRUGS (5)
  1. ACTONEL [Suspect]
     Indication: OSTEOPOROSIS
     Dosage: 35 MG, 1/WEEK, ORAL
     Route: 048
     Dates: start: 20050401, end: 20050601
  2. NOVALGIN (METAMIZOLE SODIUM MONOHYDRATE) [Concomitant]
  3. DECORTIN-H (PREDNISOLONE) TABLET [Concomitant]
  4. CITALOPRAM HYDROBROMIDE [Concomitant]
  5. DUROGESIC (FENTANYL) PATCH [Concomitant]

REACTIONS (2)
  - GASTRIC ULCER [None]
  - LARGE INTESTINAL ULCER [None]
